FAERS Safety Report 26020698 (Version 1)
Quarter: 2025Q4

REPORT INFORMATION
  Report Type: Spontaneous
  Country: EU (occurrence: EU)
  Receive Date: 20251110
  Receipt Date: 20251110
  Transmission Date: 20260118
  Serious: Yes (Other)
  Sender: Onesource Specialty Pharma
  Company Number: EU-STRIDES ARCOLAB LIMITED-2025OS001140

PATIENT
  Age: 15 Year
  Sex: Female

DRUGS (20)
  1. ETOPOSIDE [Suspect]
     Active Substance: ETOPOSIDE
     Indication: Hodgkin^s disease
     Dosage: PART OF OEPA; TWO CYCLES
     Route: 065
     Dates: start: 2011, end: 2021
  2. ETOPOSIDE [Suspect]
     Active Substance: ETOPOSIDE
     Dosage: PART OF DECOPDAC, 3 CYCLE
     Route: 065
     Dates: start: 2021, end: 2021
  3. ETOPOSIDE [Suspect]
     Active Substance: ETOPOSIDE
     Dosage: PART OF BEAM REGIMEN, HIGH DOSE-CHEMOTHERAPY
     Route: 065
     Dates: start: 202203
  4. VINCRISTINE [Suspect]
     Active Substance: VINCRISTINE
     Indication: Hodgkin^s disease
     Dosage: PART OF OEPA; TWO CYCLES
     Route: 065
     Dates: start: 2011, end: 2021
  5. VINCRISTINE [Suspect]
     Active Substance: VINCRISTINE
     Dosage: PART OF COPDAC REGIMEN, ONE CYCLE
     Route: 065
     Dates: start: 2021, end: 2021
  6. VINCRISTINE [Suspect]
     Active Substance: VINCRISTINE
     Dosage: PART OF DECOPDAC, 3 CYCLE
     Route: 065
     Dates: start: 2021, end: 2021
  7. PREDNISONE [Suspect]
     Active Substance: PREDNISONE
     Indication: Hodgkin^s disease
     Dosage: PART OF OEPA; TWO CYCLES
     Route: 065
     Dates: start: 2011, end: 2021
  8. PREDNISONE [Suspect]
     Active Substance: PREDNISONE
     Dosage: PART OF COPDAC REGIMEN, ONE CYCLE
     Route: 065
     Dates: start: 2021, end: 2021
  9. PREDNISONE [Suspect]
     Active Substance: PREDNISONE
     Dosage: PART OF DECOPDAC, 3 CYCLE
     Route: 065
     Dates: start: 2021, end: 2021
  10. DOXORUBICIN [Suspect]
     Active Substance: DOXORUBICIN
     Indication: Hodgkin^s disease
     Dosage: PART OF OEPA; TWO CYCLES
     Route: 065
     Dates: start: 2011, end: 2021
  11. DOXORUBICIN [Suspect]
     Active Substance: DOXORUBICIN
     Dosage: PART OF DECOPDAC, 3 CYCLE
     Route: 065
     Dates: start: 2021, end: 2021
  12. CYCLOPHOSPHAMIDE [Suspect]
     Active Substance: CYCLOPHOSPHAMIDE
     Indication: Hodgkin^s disease
     Dosage: PART OF COPDAC REGIMEN, ONE CYCLE
     Route: 065
     Dates: start: 2021, end: 2021
  13. CYCLOPHOSPHAMIDE [Suspect]
     Active Substance: CYCLOPHOSPHAMIDE
     Dosage: PART OF DECOPDAC, 3 CYCLE
     Route: 065
     Dates: start: 2021, end: 2021
  14. DACARBAZINE [Suspect]
     Active Substance: DACARBAZINE
     Indication: Hodgkin^s disease
     Dosage: PART OF COPDAC REGIMEN, ONE CYCLE
     Route: 065
     Dates: start: 2021, end: 2021
  15. IFOSFAMIDE [Suspect]
     Active Substance: IFOSFAMIDE
     Indication: Hodgkin^s disease
     Dosage: PART OF IVEG REGIMEN, 4 CYCLES
     Route: 065
     Dates: start: 2021, end: 2022
  16. GEMCITABINE [Suspect]
     Active Substance: GEMCITABINE
     Indication: Hodgkin^s disease
     Dosage: PART OF IVEG REGIMEN, 4 CYCLES
     Route: 065
     Dates: start: 2021, end: 2022
  17. VINORELBINE [Suspect]
     Active Substance: VINORELBINE TARTRATE
     Indication: Hodgkin^s disease
     Dosage: PART OF IVEG REGIMEN, 4 CYCLES
     Route: 065
     Dates: start: 2021, end: 2022
  18. CARMUSTINE [Suspect]
     Active Substance: CARMUSTINE
     Indication: Hodgkin^s disease
     Dosage: PART OF BEAM REGIMEN, HIGH DOSE-CHEMOTHERAPY
     Route: 065
     Dates: start: 202203
  19. CYTARABINE [Suspect]
     Active Substance: CYTARABINE
     Indication: Hodgkin^s disease
     Dosage: PART OF BEAM REGIMEN, HIGH DOSE-CHEMOTHERAPY
     Route: 065
     Dates: start: 202203
  20. MELPHALAN [Suspect]
     Active Substance: MELPHALAN
     Indication: Hodgkin^s disease
     Dosage: PART OF BEAM REGIMEN, HIGH DOSE-CHEMOTHERAPY
     Route: 065
     Dates: start: 202203

REACTIONS (2)
  - Hodgkin^s disease recurrent [Unknown]
  - Off label use [Unknown]
